FAERS Safety Report 9354077 (Version 2)
Quarter: 2013Q2

REPORT INFORMATION
  Report Type: Spontaneous
  Country: FR (occurrence: FR)
  Receive Date: 20130618
  Receipt Date: 20130625
  Transmission Date: 20140414
  Serious: Yes (Hospitalization, Other)
  Sender: FDA-Public Use
  Company Number: FR-009507513-1306FRA004740

PATIENT
  Age: 41 Year
  Sex: Female

DRUGS (4)
  1. NEXPLANON [Suspect]
     Indication: CONTRACEPTION
     Dosage: UNK
     Route: 058
     Dates: start: 201011
  2. LEVOTHYROX [Concomitant]
  3. LANTUS [Concomitant]
  4. APIDRA [Concomitant]

REACTIONS (1)
  - Ischaemic stroke [Recovered/Resolved]
